FAERS Safety Report 7441474-1 (Version None)
Quarter: 2011Q2

REPORT INFORMATION
  Report Type: 
  Country: None (occurrence: None)
  Receive Date: 20110428
  Receipt Date: 20110420
  Transmission Date: 20111010
  Serious: Yes (Other)
  Sender: FDA-Public Use
  Company Number: US-ASTELLAS-2011US001677

PATIENT

DRUGS (22)
  1. CALCIUM CARBONATE [Concomitant]
     Indication: MINERAL SUPPLEMENTATION
     Dosage: 500 MG, UID/QD
     Route: 048
  2. LANTUS [Concomitant]
     Indication: DIABETES MELLITUS
     Dosage: 21 U, UNKNOWN/D
     Route: 058
     Dates: start: 20070101
  3. TRAVATAN Z [Concomitant]
     Indication: GLAUCOMA
     Dosage: 2 MG, BID
     Route: 047
     Dates: start: 20090101
  4. HYDROCODONE BITARTRATE AND ACETAMINOPHEN [Concomitant]
     Indication: PAIN
     Dosage: 10/325 MG, PRN
     Dates: start: 20110214
  5. AMLODIPINE BESYLATE [Concomitant]
     Indication: BLOOD PRESSURE
     Dosage: 5 MG, UID/QD
     Route: 048
     Dates: start: 20080101
  6. FISH OIL [Concomitant]
     Indication: PRODUCT USED FOR UNKNOWN INDICATION
     Dosage: 1200 MG, BID
     Route: 048
  7. NOVOLOG [Concomitant]
     Indication: DIABETES MELLITUS
     Dosage: 5 U, BID
     Route: 058
     Dates: start: 20100101
  8. TEMAZEPAM [Concomitant]
     Indication: SLEEP DISORDER THERAPY
     Dosage: 30 MG, PRN
     Route: 048
     Dates: start: 20070101
  9. MAG-OX [Concomitant]
     Indication: MINERAL SUPPLEMENTATION
     Dosage: 400 MG, TID
     Route: 048
     Dates: start: 20080101
  10. MYFORTIC [Concomitant]
     Indication: HEART TRANSPLANT
     Dosage: 180 MG, BID
     Route: 048
     Dates: start: 20070714
  11. GABAPENTIN [Concomitant]
     Indication: NERVOUS SYSTEM DISORDER
     Dosage: 300 MG, TID
     Route: 048
     Dates: start: 20070101
  12. FLEXERIL [Concomitant]
     Indication: MUSCLE RELAXANT THERAPY
     Dosage: 10 MG, UID/QD
     Route: 048
     Dates: start: 20010101
  13. VALIUM [Concomitant]
     Indication: PAIN
     Dosage: 10 MG, PRN
     Route: 048
     Dates: start: 20050101
  14. PRAVASTATIN SODIUM [Concomitant]
     Indication: BLOOD CHOLESTEROL
     Dosage: 80 MG, UID/QD
     Route: 048
     Dates: start: 20070101
  15. SYNTHROID [Concomitant]
     Indication: THYROID THERAPY
     Dosage: 50 UG, UID/QD
     Route: 048
     Dates: start: 20060101
  16. PANTOPRAZOLE [Concomitant]
     Indication: GASTROINTESTINAL DISORDER
     Dosage: 40 MG, UID/QD
     Route: 048
     Dates: start: 20090101
  17. VITAMIN B-12 [Concomitant]
     Indication: SUPPLEMENTATION THERAPY
     Dosage: 1 MG, UID/QD
     Route: 048
     Dates: start: 20080101
  18. PROGRAF [Suspect]
     Indication: HEART TRANSPLANT
     Dosage: 3.5 MG, UID/QD
     Route: 048
     Dates: start: 20070714
  19. CLONAZEPAM [Concomitant]
     Indication: NERVOUS SYSTEM DISORDER
     Dosage: 0.5 MG, TID
     Route: 048
  20. ASPIRIN [Concomitant]
     Indication: ANTICOAGULANT THERAPY
     Dosage: 81 MG, UID/QD
     Route: 048
     Dates: start: 20070101
  21. COLACE [Concomitant]
     Indication: GASTROINTESTINAL DISORDER THERAPY
     Dosage: 100 MG, BID
     Route: 048
     Dates: start: 20070101
  22. VITAMIN C [Concomitant]
     Indication: SUPPLEMENTATION THERAPY
     Dosage: 500 MG, UID/QD
     Route: 048

REACTIONS (2)
  - CERVICAL SPINAL STENOSIS [None]
  - GRAFT DYSFUNCTION [None]
